FAERS Safety Report 10559968 (Version 5)
Quarter: 2015Q1

REPORT INFORMATION
  Report Type: Spontaneous
  Country: JP (occurrence: JP)
  Receive Date: 20141103
  Receipt Date: 20150304
  Transmission Date: 20150720
  Serious: Yes (Death, Life-Threatening)
  Sender: FDA-Public Use
  Company Number: JP-BAYER-2014-161213

PATIENT
  Age: 71 Year
  Sex: Female
  Weight: 41 kg

DRUGS (7)
  1. STIVARGA [Suspect]
     Active Substance: REGORAFENIB
     Indication: RECTAL CANCER
     Dosage: 160 MG, QD (ONE CYCLE IS STIVARGA ON FOR 3WEEKS AND OFF FOR 1 WEEK.)
     Route: 048
     Dates: start: 20141016, end: 20141027
  2. PANTETHINE [Concomitant]
     Active Substance: PANTETHINE
     Dosage: DAILY DOSE 300 MG
     Route: 048
     Dates: start: 20140227, end: 20141027
  3. HIRUDOID [Concomitant]
     Active Substance: GLYCOSAMINOGLYCANS
     Dosage: UNK
     Route: 061
     Dates: start: 20141016, end: 20141027
  4. PROMAC [POLAPREZINC] [Concomitant]
     Active Substance: POLAPREZINC
     Dosage: 150 MG, UNK
     Route: 048
     Dates: start: 20140612, end: 20141027
  5. VEGIN [Concomitant]
     Dosage: UNK
     Route: 061
     Dates: start: 20141016, end: 20141027
  6. EPADEL [Concomitant]
     Active Substance: ICOSAPENT
     Dosage: 1800 MG, UNK
     Route: 048
     Dates: start: 20140612, end: 20141024
  7. MAGLAX [Concomitant]
     Active Substance: MAGNESIUM OXIDE
     Dosage: DAILY DOSE 990 MG
     Route: 048
     Dates: start: 20140227, end: 20141027

REACTIONS (5)
  - Drug-induced liver injury [Fatal]
  - Disseminated intravascular coagulation [Unknown]
  - Rash [Not Recovered/Not Resolved]
  - Pyrexia [Recovered/Resolved]
  - Platelet count decreased [Not Recovered/Not Resolved]

NARRATIVE: CASE EVENT DATE: 20141027
